APPROVED DRUG PRODUCT: STAXYN
Active Ingredient: VARDENAFIL HYDROCHLORIDE
Strength: 10MG **Federal Register determination that product was not discontinued or withdrawn for safety or effectiveness reasons**
Dosage Form/Route: TABLET, ORALLY DISINTEGRATING;ORAL
Application: N200179 | Product #001
Applicant: BAYER HEALTHCARE PHARMACEUTICALS INC
Approved: Jun 17, 2010 | RLD: Yes | RS: No | Type: DISCN

PATENTS:
Patent 8613950 | Expires: Dec 23, 2028